FAERS Safety Report 23664122 (Version 3)
Quarter: 2024Q3

REPORT INFORMATION
  Report Type: Spontaneous
  Country: JP (occurrence: JP)
  Receive Date: 20240322
  Receipt Date: 20240805
  Transmission Date: 20241016
  Serious: Yes (Hospitalization)
  Sender: TAIHO ONCOLOGY INC
  Company Number: JP-TAIHOP-2024-000413

PATIENT
  Age: 52 Year
  Sex: Female
  Weight: 51 kg

DRUGS (6)
  1. LONSURF [Suspect]
     Active Substance: TIPIRACIL HYDROCHLORIDE\TRIFLURIDINE
     Indication: Colorectal cancer metastatic
     Dosage: 50MG, 2 TIMES?CYCLE UNKNOWN.?DAILY DOSE: 100 MILLIGRAM(S)
     Route: 048
     Dates: start: 20230901, end: 20231220
  2. AVASTIN [Suspect]
     Active Substance: BEVACIZUMAB
     Indication: Colon cancer
     Dosage: FREQUENCY UNKNOWN?DAILY DOSE: 260 (UNIT UNSPECIFIED)
     Route: 042
     Dates: start: 20230901, end: 20231220
  3. CALONAL [Concomitant]
     Active Substance: ACETAMINOPHEN
     Indication: Product used for unknown indication
     Dosage: START DATE: BEFORE /JUN/2023
     Route: 048
  4. ALPRAZOLAM [Concomitant]
     Active Substance: ALPRAZOLAM
     Indication: Anxiety
     Dosage: START DATE: BEFORE /JUN/2023
  5. NOVAMIN [Concomitant]
     Indication: Product used for unknown indication
     Dosage: START DATE: BEFORE JUN-2023
     Route: 048
  6. NEXIUM [Concomitant]
     Active Substance: ESOMEPRAZOLE MAGNESIUM
     Indication: Product used for unknown indication
     Dosage: START DATE: BEFORE JUN-2023
     Route: 048
     Dates: start: 202205, end: 20231202

REACTIONS (3)
  - Hypomagnesaemia [Recovered/Resolved]
  - Nausea [Unknown]
  - Decreased appetite [Unknown]

NARRATIVE: CASE EVENT DATE: 20231201
